FAERS Safety Report 16117169 (Version 1)
Quarter: 2019Q1

REPORT INFORMATION
  Report Type: Spontaneous
  Country: JP (occurrence: JP)
  Receive Date: 20190326
  Receipt Date: 20190326
  Transmission Date: 20190418
  Serious: Yes (Hospitalization)
  Sender: FDA-Public Use
  Company Number: JP-ORPHAN EUROPE-2064585

PATIENT
  Age: 12 Month
  Weight: 10.03 kg

DRUGS (5)
  1. BIOTIINI [Concomitant]
     Dates: start: 20151228
  2. FRESMIN S [Concomitant]
     Active Substance: HYDROXOCOBALAMIN
  3. ELCARTIN [Concomitant]
  4. CYSTADANE [Suspect]
     Active Substance: BETAINE
     Indication: HOMOCYSTINURIA
     Dates: start: 20151222
  5. TEGRETOL [Concomitant]
     Active Substance: CARBAMAZEPINE

REACTIONS (1)
  - Enterocolitis [Recovering/Resolving]

NARRATIVE: CASE EVENT DATE: 20161216
